FAERS Safety Report 15316598 (Version 2)
Quarter: 2018Q3

REPORT INFORMATION
  Report Type: Spontaneous
  Country: US (occurrence: US)
  Receive Date: 20180824
  Receipt Date: 20180915
  Transmission Date: 20181010
  Serious: No
  Sender: FDA-Public Use
  Company Number: US-009507513-1808USA009338

PATIENT
  Age: 79 Year
  Sex: Female

DRUGS (2)
  1. TEMAZEPAM. [Concomitant]
     Active Substance: TEMAZEPAM
  2. BELSOMRA [Suspect]
     Active Substance: SUVOREXANT
     Indication: SLEEP DISORDER THERAPY
     Dosage: 10 MG, QD
     Route: 048
     Dates: start: 20180809, end: 20180813

REACTIONS (2)
  - Sluggishness [Recovered/Resolved]
  - Disturbance in attention [Recovered/Resolved]

NARRATIVE: CASE EVENT DATE: 20180809
